FAERS Safety Report 19500403 (Version 1)
Quarter: 2021Q3

REPORT INFORMATION
  Report Type: Spontaneous
  Country: GB (occurrence: GB)
  Receive Date: 20210707
  Receipt Date: 20210707
  Transmission Date: 20211014
  Serious: Yes (Other)
  Sender: FDA-Public Use
  Company Number: GB-SA-2021SA218006

PATIENT
  Age: 83 Year
  Sex: Female

DRUGS (24)
  1. CLOBETASOL PROPIONATE. [Concomitant]
     Active Substance: CLOBETASOL PROPIONATE
     Dosage: UNK UNK, BID EVERY MORNING AND AT NIGHT.
     Route: 061
     Dates: start: 20201104
  2. MIRTAZAPINE. [Concomitant]
     Active Substance: MIRTAZAPINE
     Dosage: 1 DF, HS
  3. ZEROCREAM [Concomitant]
     Dosage: UNK UNK, QID
     Dates: start: 20201105
  4. DUPILUMAB [Suspect]
     Active Substance: DUPILUMAB
     Indication: DERMATITIS ATOPIC
     Dosage: 300 MG
     Dates: start: 20200824, end: 20201209
  5. CLOBETASONE BUTYRATE [Concomitant]
     Active Substance: CLOBETASONE BUTYRATE
     Dosage: UNK UNK, BID EVERY MORNING AND AT NIGHT
     Dates: start: 20201104
  6. SIMVASTATIN. [Concomitant]
     Active Substance: SIMVASTATIN
     Dosage: 1 DF, HS
  7. PREDNISOLONE. [Concomitant]
     Active Substance: PREDNISOLONE
     Dosage: 4 DF, QD EVERY MORNING
     Dates: start: 20201104
  8. PREDNISOLONE. [Concomitant]
     Active Substance: PREDNISOLONE
     Dosage: 1 DF, QD EVERY MORNING
  9. PREDNISOLONE. [Concomitant]
     Active Substance: PREDNISOLONE
     Dosage: 3 DF, QD EVERY MORNING
  10. PREDNISOLONE. [Concomitant]
     Active Substance: PREDNISOLONE
     Dosage: 2 DF, QD EVERY MORNING
  11. VENLAFAXINE [Concomitant]
     Active Substance: VENLAFAXINE HYDROCHLORIDE
     Dosage: 1 DF, QD
  12. ATENOLOL. [Concomitant]
     Active Substance: ATENOLOL
     Dosage: 1 DF, QD
  13. DERMOL [BENZALKONIUM CHLORIDE;CHLORHEXIDINE HYDROCHLORIDE;ISOPROPYL MY [Concomitant]
     Dosage: UNK UNK, PRN
     Dates: start: 20201104
  14. HYDROMOL [EMULSIFYING WAX;PARAFFIN SOFT] [Concomitant]
     Dosage: UNK UNK, QID
     Dates: start: 20201104
  15. PARACETAMOL [Concomitant]
     Active Substance: ACETAMINOPHEN
     Dosage: 2 DF, PRN (TAKEN EVERY 4?6 HOURS UP TO FOUR TIMES A DAY PRN)
  16. PERMETHRIN. [Concomitant]
     Active Substance: PERMETHRIN
     Dosage: UNK UNK, HS
     Dates: start: 20200922
  17. FERROUS SULFATE. [Concomitant]
     Active Substance: FERROUS SULFATE
     Dosage: 1 DF, TID
  18. LORATADINE. [Concomitant]
     Active Substance: LORATADINE
     Dosage: 5 ML, QD
     Route: 048
  19. MYCOPHENOLATE MOFETIL. [Concomitant]
     Active Substance: MYCOPHENOLATE MOFETIL
     Dosage: 1 DF, QD
     Dates: start: 20201104
  20. MYCOPHENOLATE MOFETIL. [Concomitant]
     Active Substance: MYCOPHENOLATE MOFETIL
     Dosage: 1 DF, BID ONE CAPSULE TWICE A DAY IN THE MORNING AND AT TEATIME FOR 28 DAYS
     Dates: start: 20201209
  21. CLOPIDOGREL [Concomitant]
     Active Substance: CLOPIDOGREL BISULFATE
     Dosage: 1 DF, QD
  22. MOMETASONE [Concomitant]
     Active Substance: MOMETASONE
     Dosage: UNK UNK, QD
     Dates: start: 20200411
  23. OXYCONTIN [Concomitant]
     Active Substance: OXYCODONE HYDROCHLORIDE
     Dosage: 1 DF, Q12H
  24. THIAMINE. [Concomitant]
     Active Substance: THIAMINE
     Dosage: 1 DF, BID

REACTIONS (1)
  - Alopecia [Unknown]
